FAERS Safety Report 24976229 (Version 1)
Quarter: 2025Q1

REPORT INFORMATION
  Report Type: Spontaneous
  Country: US (occurrence: US)
  Receive Date: 20250217
  Receipt Date: 20250217
  Transmission Date: 20250409
  Serious: Yes (Other)
  Sender: CIPLA
  Company Number: US-CIPLA LTD.-2025US01541

PATIENT

DRUGS (9)
  1. GABAPENTIN [Suspect]
     Active Substance: GABAPENTIN
     Indication: Hot flush
     Dosage: 1 DOSAGE FORM, QD (AT BEDTIME)
     Route: 048
     Dates: start: 202403
  2. GABAPENTIN [Suspect]
     Active Substance: GABAPENTIN
     Dosage: 1 DOSAGE FORM, QD (AT BEDTIME) (NEW BOTTLE)
     Route: 048
     Dates: start: 202403
  3. VIMPAT [Concomitant]
     Active Substance: LACOSAMIDE
     Indication: Seizure
     Dosage: 100 MILLIGRAM, BID (TWICE A DAY)
     Route: 065
     Dates: start: 201910
  4. NP THYROID [Concomitant]
     Active Substance: LEVOTHYROXINE\LIOTHYRONINE
     Indication: Hypothyroidism
     Dosage: 3 DOSAGE FORM, QD (3 TABLETS EVERY MORNING), STRENGTH - 15 MG
     Route: 065
     Dates: start: 2002
  5. OMEPRAZOLE [Concomitant]
     Active Substance: OMEPRAZOLE
     Indication: Gastrooesophageal reflux disease
     Dosage: 200 MILLIGRAM, QD (ONCE IN MORNING)
     Route: 065
     Dates: start: 202403
  6. FISH OIL [Concomitant]
     Active Substance: FISH OIL
     Indication: Supplementation therapy
     Dosage: 2000 MILLIGRAM, QD (ONCE A DAY)
     Route: 065
     Dates: start: 2012
  7. VITAMIN D3 [Concomitant]
     Active Substance: CHOLECALCIFEROL
     Indication: Supplementation therapy
     Dosage: 4000 INTERNATIONAL UNIT, QD (ONCE A DAY)
     Route: 065
     Dates: start: 2012
  8. VITAMIN C [Concomitant]
     Active Substance: ASCORBIC ACID
     Indication: Supplementation therapy
     Dosage: 1000 MILLIGRAM, QD (ONCE A DAY)
     Route: 065
     Dates: start: 2019
  9. VITAMIN B12 [Concomitant]
     Active Substance: CYANOCOBALAMIN
     Indication: Supplementation therapy
     Dosage: 250 MILLIGRAM, QD (ONCE A DAY)
     Route: 065
     Dates: start: 2020

REACTIONS (6)
  - Depressed level of consciousness [Unknown]
  - Sleep disorder [Unknown]
  - Drug ineffective [Unknown]
  - Product quality issue [Unknown]
  - Therapeutic response changed [Unknown]
  - Off label use [Unknown]

NARRATIVE: CASE EVENT DATE: 20240301
